FAERS Safety Report 25845405 (Version 1)
Quarter: 2025Q3

REPORT INFORMATION
  Report Type: Other
  Country: GB (occurrence: GB)
  Receive Date: 20250925
  Receipt Date: 20250925
  Transmission Date: 20251020
  Serious: Yes (Hospitalization, Disabling, Other)
  Sender: LUPIN
  Company Number: None

PATIENT
  Age: 75 Year
  Sex: Male
  Weight: 108 kg

DRUGS (1)
  1. SERTRALINE [Suspect]
     Active Substance: SERTRALINE HYDROCHLORIDE
     Indication: Depression
     Dosage: 150 MILLIGRAM, BID
     Route: 065
     Dates: start: 2021

REACTIONS (1)
  - Eye injury [Not Recovered/Not Resolved]

NARRATIVE: CASE EVENT DATE: 20240101
